FAERS Safety Report 6039199-2 (Version None)
Quarter: 2009Q1

REPORT INFORMATION
  Report Type: 
  Country: None (occurrence: None)
  Receive Date: 20090115
  Receipt Date: 20081201
  Transmission Date: 20090719
  Serious: Yes (Hospitalization, Other)
  Sender: FDA-Public Use
  Company Number: US-PFIZER INC-2008085034

PATIENT
  Sex: Female
  Weight: 77.272 kg

DRUGS (2)
  1. DILANTIN [Suspect]
     Indication: CONVULSION
     Dates: start: 19600101
  2. PAXIL [Concomitant]

REACTIONS (9)
  - ANTICONVULSANT DRUG LEVEL BELOW THERAPEUTIC [None]
  - CHILLS [None]
  - CONVULSION [None]
  - DYSGEUSIA [None]
  - FRUSTRATION [None]
  - HEADACHE [None]
  - NERVOUSNESS [None]
  - RESPIRATORY ARREST [None]
  - STATUS EPILEPTICUS [None]
